FAERS Safety Report 8355275-3 (Version None)
Quarter: 2012Q2

REPORT INFORMATION
  Report Type: 
  Country: None (occurrence: None)
  Receive Date: 20120511
  Receipt Date: 20120507
  Transmission Date: 20120825
  Serious: Yes (Death, Life-Threatening, Hospitalization)
  Sender: FDA-Public Use
  Company Number: US-ACTELION-A-NJ2012-62448

PATIENT

DRUGS (2)
  1. TRACLEER [Suspect]
     Indication: PULMONARY ARTERIAL HYPERTENSION
     Dosage: UNK
     Route: 048
     Dates: start: 20100209, end: 20120301
  2. SILDENAFIL [Concomitant]

REACTIONS (5)
  - RIGHT VENTRICULAR FAILURE [None]
  - PULMONARY ARTERIAL HYPERTENSION [None]
  - FLUID RETENTION [None]
  - SYNCOPE [None]
  - PLEURAL EFFUSION [None]
